FAERS Safety Report 18068647 (Version 9)
Quarter: 2022Q2

REPORT INFORMATION
  Report Type: Spontaneous
  Country: GB (occurrence: GB)
  Receive Date: 20200724
  Receipt Date: 20220429
  Transmission Date: 20220721
  Serious: Yes (Hospitalization, Other)
  Sender: FDA-Public Use
  Company Number: NVSC2020GB052340

PATIENT
  Age: 7 Year
  Sex: Male

DRUGS (48)
  1. BISOPROLOL [Suspect]
     Active Substance: BISOPROLOL
     Indication: Product used for unknown indication
     Dosage: 2.5 MG, QD
     Route: 065
  2. BISOPROLOL [Suspect]
     Active Substance: BISOPROLOL
     Dosage: 2.5 MG (2.5 MILLIGRAM, STRENGTH: 2.5 MG,DRUG TAKEN BEYOND EXPIRY DATE, MEDICATION ERROR, MISUSE, OFF
     Route: 065
  3. BISOPROLOL [Suspect]
     Active Substance: BISOPROLOL
     Dosage: 2.5 MG QD (2.5 MILLIGRAM, STRENGTH: 2.5 MG,DRUG TAKEN BEYOND EXPIRY DATE, MEDICATION ERROR, MISUSE,
     Route: 065
  4. BISOPROLOL [Suspect]
     Active Substance: BISOPROLOL
     Dosage: 2.5 MG QD (2.5 MILLIGRAM, STRENGTH: 2.5 MG,DRUG TAKEN BEYOND EXPIRY DATE, MEDICATION ERROR, MISUSE,
     Route: 065
  5. TRAMADOL HYDROCHLORIDE [Suspect]
     Active Substance: TRAMADOL HYDROCHLORIDE
     Indication: Product used for unknown indication
     Dosage: UNK
     Route: 065
  6. TRAMADOL HYDROCHLORIDE [Suspect]
     Active Substance: TRAMADOL HYDROCHLORIDE
     Dosage: 50 MG, QD
     Route: 065
  7. TRAMADOL HYDROCHLORIDE [Suspect]
     Active Substance: TRAMADOL HYDROCHLORIDE
     Dosage: 100 MG, QD
     Route: 065
  8. TRAMADOL HYDROCHLORIDE [Suspect]
     Active Substance: TRAMADOL HYDROCHLORIDE
     Dosage: UNK (UNK, ONCE A DAY, ADDITIONAL INFO: MEDICATION ERROR)
     Route: 065
  9. TRAMADOL HYDROCHLORIDE [Suspect]
     Active Substance: TRAMADOL HYDROCHLORIDE
     Dosage: 50 MG (50 MILLIGRAM, STRENGTH : 50 MG,DRUG TAKEN BEYOND EXPIRY DATE, MEDICATION ERROR, MISUSE)
     Route: 065
  10. TRAMADOL [Suspect]
     Active Substance: TRAMADOL
     Indication: Product used for unknown indication
     Dosage: 100 MG, QD (STRENGTH: 100 MG)
     Route: 065
  11. TRAMADOL [Suspect]
     Active Substance: TRAMADOL
     Dosage: UNK
     Route: 065
  12. TRAMADOL [Suspect]
     Active Substance: TRAMADOL
     Dosage: UNK, QD
     Route: 065
  13. TRAMADOL [Suspect]
     Active Substance: TRAMADOL
     Dosage: 50 MILLIGRAM, QD
     Route: 065
  14. TRAMADOL [Suspect]
     Active Substance: TRAMADOL
     Dosage: 100 MILLIGRAM, QD
     Route: 065
  15. TRAMADOL [Suspect]
     Active Substance: TRAMADOL
     Dosage: 100 MILLIGRAM
     Route: 065
  16. TRAMADOL [Suspect]
     Active Substance: TRAMADOL
     Dosage: 100 MILLIGRAM, QD
     Route: 065
  17. TRAMADOL [Suspect]
     Active Substance: TRAMADOL
     Dosage: UNK UNK, QOD
     Route: 065
  18. TRAMADOL [Suspect]
     Active Substance: TRAMADOL
     Dosage: 100 MILLIGRAM, QD
     Route: 065
  19. TRAMADOL [Suspect]
     Active Substance: TRAMADOL
     Dosage: 50 MILLIGRAM, QD
     Route: 065
  20. TRAMADOL [Suspect]
     Active Substance: TRAMADOL
     Dosage: 100 MILLIGRAM, QD
     Route: 065
  21. TRAMADOL [Suspect]
     Active Substance: TRAMADOL
     Dosage: 100 MILLIGRAM, QD
     Route: 065
  22. DAPTOMYCIN [Suspect]
     Active Substance: DAPTOMYCIN
     Indication: Device related infection
     Dosage: UNK
     Route: 042
  23. DAPTOMYCIN [Suspect]
     Active Substance: DAPTOMYCIN
     Indication: Bacteraemia
  24. VANCOMYCIN [Suspect]
     Active Substance: VANCOMYCIN
     Indication: Device related infection
     Dosage: UNK
     Route: 042
  25. VANCOMYCIN [Suspect]
     Active Substance: VANCOMYCIN
     Indication: Bacteraemia
     Dosage: UNK (UNK, DRUG TAKEN BEYOND EXPIRY DATE, MEDICATION ERROR, MISUSE, OFF LABEL USEPOWDER FOR INJECTION
     Route: 065
  26. ALFUZOSIN HYDROCHLORIDE [Suspect]
     Active Substance: ALFUZOSIN HYDROCHLORIDE
     Indication: Product used for unknown indication
     Dosage: 10 MG, QD (10 MILLIGRAM, STRENGTH: 10 MG)
     Route: 065
  27. ALFUZOSIN HYDROCHLORIDE [Suspect]
     Active Substance: ALFUZOSIN HYDROCHLORIDE
     Dosage: 10 MG, QD (10 MG, QD,ADDITIONAL INFO: DRUG TAKEN BEYOND EXPIRY DATE, MEDICATION ERROR, MISUSE)
     Route: 065
  28. ALFUZOSIN HYDROCHLORIDE [Suspect]
     Active Substance: ALFUZOSIN HYDROCHLORIDE
     Dosage: 10 MG, QD
     Route: 065
  29. ALFUZOSIN HYDROCHLORIDE [Suspect]
     Active Substance: ALFUZOSIN HYDROCHLORIDE
     Dosage: 10 MG, QD
     Route: 065
  30. ALFUZOSIN HYDROCHLORIDE [Suspect]
     Active Substance: ALFUZOSIN HYDROCHLORIDE
     Dosage: 10 MG, QD
     Route: 065
  31. ALFUZOSIN HYDROCHLORIDE [Suspect]
     Active Substance: ALFUZOSIN HYDROCHLORIDE
     Dosage: 10 MG, QD
     Route: 065
  32. ALFUZOSIN HYDROCHLORIDE [Suspect]
     Active Substance: ALFUZOSIN HYDROCHLORIDE
     Dosage: 1 DOSAGE FORM, QD
     Route: 065
  33. ALFUZOSIN HYDROCHLORIDE [Suspect]
     Active Substance: ALFUZOSIN HYDROCHLORIDE
     Dosage: STRENGTH: 10 MG;ADDITIONAL INFO: DRUG TAKEN BEYOND
     Route: 065
  34. ALFUZOSIN HYDROCHLORIDE [Suspect]
     Active Substance: ALFUZOSIN HYDROCHLORIDE
     Dosage: STRENGTH: 10 MG;ADDITIONAL INFO: DRUG TAKEN BEYONDUNK
     Route: 065
  35. DUTASTERIDE [Suspect]
     Active Substance: DUTASTERIDE
     Indication: Product used for unknown indication
     Dosage: 500 UG, QD
     Route: 065
  36. DUTASTERIDE [Suspect]
     Active Substance: DUTASTERIDE
     Dosage: 500 UG (500 MICROGRAM, STRENGTH: 500 MCG, DRUG TAKEN BEYOND)
     Route: 065
  37. DUTASTERIDE [Suspect]
     Active Substance: DUTASTERIDE
     Dosage: UNK (STRENGTH: 500 MCG DOSE: 500 QD)
     Route: 065
  38. DUTASTERIDE [Suspect]
     Active Substance: DUTASTERIDE
     Dosage: UNK (500 MICROGRAM, ONCE A DAY)
     Route: 065
  39. DUTASTERIDE [Suspect]
     Active Substance: DUTASTERIDE
     Dosage: 15 MG, QD
     Route: 065
  40. DUTASTERIDE [Suspect]
     Active Substance: DUTASTERIDE
     Dosage: 500 MG, QD
     Route: 065
  41. DUTASTERIDE [Suspect]
     Active Substance: DUTASTERIDE
     Dosage: 500 G, QD
     Route: 065
  42. DUTASTERIDE [Suspect]
     Active Substance: DUTASTERIDE
     Dosage: 500 G, QD
     Route: 065
  43. LANSOPRAZOLE [Suspect]
     Active Substance: LANSOPRAZOLE
     Indication: Product used for unknown indication
     Dosage: 2.5 MG, QD
     Route: 065
  44. LANSOPRAZOLE [Suspect]
     Active Substance: LANSOPRAZOLE
     Dosage: 15 MG, QD (STRENGTH 2.5 MG)
     Route: 065
  45. LANSOPRAZOLE [Suspect]
     Active Substance: LANSOPRAZOLE
     Dosage: 15 MG, QD (15 MG, QD)
     Route: 065
  46. LANSOPRAZOLE [Suspect]
     Active Substance: LANSOPRAZOLE
     Dosage: 15 MG (STRENGTH: 15 MG QD)
     Route: 065
  47. LANSOPRAZOLE [Suspect]
     Active Substance: LANSOPRAZOLE
     Dosage: 15 MG, QD (15 MILLIGRAM QD, STRENGTH: 15 MG,ADDITIONAL INFO: DRUG TAKEN BEYOND EXPIRY DATE, MEDICATI
     Route: 065
  48. LANSOPRAZOLE [Suspect]
     Active Substance: LANSOPRAZOLE
     Dosage: 15 MG, QD
     Route: 065

REACTIONS (15)
  - Malaise [Unknown]
  - Product administration error [Unknown]
  - Product dispensing error [Unknown]
  - Product storage error [Unknown]
  - Wrong patient received product [Unknown]
  - Antimicrobial susceptibility test resistant [Unknown]
  - Minimum inhibitory concentration [Unknown]
  - Lower respiratory tract infection [Unknown]
  - Expired product administered [Unknown]
  - Wrong product administered [Unknown]
  - Drug dispensed to wrong patient [Unknown]
  - Therapy non-responder [Unknown]
  - Drug ineffective for unapproved indication [Unknown]
  - Therapeutic response delayed [Unknown]
  - Off label use [Unknown]
